FAERS Safety Report 24071000 (Version 3)
Quarter: 2024Q3

REPORT INFORMATION
  Report Type: Spontaneous
  Country: US (occurrence: US)
  Receive Date: 20240710
  Receipt Date: 20240822
  Transmission Date: 20241016
  Serious: No
  Sender: ROCHE
  Company Number: US-ROCHE-3577536

PATIENT
  Age: 75 Year
  Sex: Male
  Weight: 106.59 kg

DRUGS (4)
  1. VABYSMO [Suspect]
     Active Substance: FARICIMAB\FARICIMAB-SVOA
     Indication: Neovascular age-related macular degeneration
     Dosage: EVERY 4-5 WEEKS
     Route: 050
     Dates: start: 20231206, end: 20240423
  2. VABYSMO [Suspect]
     Active Substance: FARICIMAB\FARICIMAB-SVOA
     Dosage: EVERY 4-5 WEEKS
     Route: 050
  3. LUCENTIS [Suspect]
     Active Substance: RANIBIZUMAB
     Indication: Product used for unknown indication
     Route: 050
     Dates: start: 2016
  4. LUCENTIS [Suspect]
     Active Substance: RANIBIZUMAB
     Dosage: EVERY 4-5 WEEKS
     Route: 050

REACTIONS (3)
  - Keratic precipitates [Recovered/Resolved]
  - Iritis [Recovered/Resolved]
  - Device difficult to use [Unknown]

NARRATIVE: CASE EVENT DATE: 20240423
